FAERS Safety Report 6659627-9 (Version None)
Quarter: 2010Q1

REPORT INFORMATION
  Report Type: 
  Country: None (occurrence: None)
  Receive Date: 20100330
  Receipt Date: 20100324
  Transmission Date: 20100710
  Serious: Yes (Other)
  Sender: FDA-Public Use
  Company Number: US-PFIZER INC-2010038404

PATIENT
  Sex: Female

DRUGS (1)
  1. CHANTIX [Suspect]
     Indication: SMOKING CESSATION THERAPY
     Dosage: UNK
     Route: 048
     Dates: start: 20080703, end: 20081112

REACTIONS (8)
  - ANXIETY [None]
  - DEPRESSION [None]
  - DISORIENTATION [None]
  - DIZZINESS [None]
  - MENTAL DISORDER [None]
  - MENTAL STATUS CHANGES [None]
  - NIGHTMARE [None]
  - VISUAL IMPAIRMENT [None]
